FAERS Safety Report 23503874 (Version 1)
Quarter: 2024Q1

REPORT INFORMATION
  Report Type: Report from Study
  Country: US (occurrence: US)
  Receive Date: 20240209
  Receipt Date: 20240209
  Transmission Date: 20240410
  Serious: No
  Sender: FDA-Public Use
  Company Number: US-ALXN-A202301026

PATIENT
  Age: 48 Year
  Sex: Female

DRUGS (1)
  1. STRENSIQ [Suspect]
     Active Substance: ASFOTASE ALFA
     Indication: Hypophosphatasia
     Dosage: UNK
     Route: 065

REACTIONS (13)
  - Blood glucose decreased [Unknown]
  - Blood calcium increased [Unknown]
  - Blood potassium increased [Unknown]
  - Blood phosphorus increased [Unknown]
  - Musculoskeletal stiffness [Unknown]
  - Carpal tunnel syndrome [Unknown]
  - Osteoarthritis [Unknown]
  - Muscular weakness [Unknown]
  - Pain [Unknown]
  - Meniscus injury [Unknown]
  - Injection site atrophy [Unknown]
  - Injection site mass [Unknown]
  - Injection site pain [Unknown]

NARRATIVE: CASE EVENT DATE: 20220701
